FAERS Safety Report 9639340 (Version 3)
Quarter: 2015Q3

REPORT INFORMATION
  Report Type: Report from Study
  Country: GB (occurrence: GB)
  Receive Date: 20131022
  Receipt Date: 20150721
  Transmission Date: 20151125
  Serious: Yes (Hospitalization)
  Sender: FDA-Public Use
  Company Number: GB-ROCHE-1291083

PATIENT
  Age: 84 Year
  Sex: Female

DRUGS (5)
  1. CANDESARTAN [Concomitant]
     Active Substance: CANDESARTAN
     Route: 065
     Dates: start: 20110412
  2. ATORVASTATIN [Concomitant]
     Active Substance: ATORVASTATIN
     Route: 065
     Dates: start: 20060302
  3. ASPIRIN. [Concomitant]
     Active Substance: ASPIRIN
     Route: 065
     Dates: start: 20030920
  4. BECLOMETASONE [Concomitant]
     Active Substance: BECLOMETHASONE DIPROPIONATE
     Route: 065
     Dates: start: 20120705
  5. RANIBIZUMAB [Suspect]
     Active Substance: RANIBIZUMAB
     Indication: NEOVASCULAR AGE-RELATED MACULAR DEGENERATION
     Route: 065
     Dates: start: 20100625

REACTIONS (5)
  - Circulatory collapse [Recovered/Resolved]
  - Pneumothorax [Recovered/Resolved]
  - Lower respiratory tract infection [Recovered/Resolved]
  - Atrioventricular block first degree [Unknown]
  - Lung infiltration [Recovered/Resolved]

NARRATIVE: CASE EVENT DATE: 20130523
